FAERS Safety Report 4831994-8 (Version None)
Quarter: 2005Q4

REPORT INFORMATION
  Report Type: 
  Country: None (occurrence: None)
  Receive Date: 20051116
  Receipt Date: 20051103
  Transmission Date: 20060501
  Serious: Yes (Hospitalization)
  Sender: FDA-Public Use
  Company Number: GXKR2005GB01913

PATIENT
  Age: 50 Year
  Sex: Male

DRUGS (8)
  1. ATENOLOL [Suspect]
  2. WARFARIN (NGX) (WARFARIN) UNKNOWN) [Suspect]
  3. HUMIRA (ADALIMUMAB) [Suspect]
     Indication: RHEUMATOID ARTHRITIS
     Dosage: 40 MG, EVERY 2 WEEKS, SUBCUTANEOUS
     Route: 058
     Dates: start: 20050401, end: 20050803
  4. SULPHSALAZINE (SULFASALAZINE) [Suspect]
  5. LANSOPRAZOLE [Suspect]
  6. PROCHLORPERAZINE MALEATE [Suspect]
  7. ROFECOXIB [Suspect]
  8. FERROUS SULFATE TAB [Suspect]

REACTIONS (2)
  - ARTHRITIS INFECTIVE [None]
  - DRUG INEFFECTIVE [None]
